FAERS Safety Report 4318511-6 (Version None)
Quarter: 2004Q1

REPORT INFORMATION
  Report Type: 
  Country: None (occurrence: None)
  Receive Date: 20040318
  Receipt Date: 20040312
  Transmission Date: 20041129
  Serious: Yes (Hospitalization)
  Sender: FDA-Public Use
  Company Number: 200411000FR

PATIENT
  Age: 54 Year
  Sex: Male

DRUGS (4)
  1. LOVENOX [Suspect]
     Indication: SCARLET FEVER
     Route: 058
     Dates: start: 19950226, end: 19950302
  2. ACETAMINOPHEN W/ PROPOXYPHENE HCL [Suspect]
     Indication: SCARLET FEVER
     Route: 042
     Dates: start: 19950226, end: 19950302
  3. AMOXICILLIN [Concomitant]
     Indication: SCARLET FEVER
     Route: 042
     Dates: start: 19950226, end: 19950306
  4. AMOXICILLIN [Concomitant]
     Route: 048
     Dates: end: 19950313

REACTIONS (2)
  - LEUKOPENIA [None]
  - THROMBOCYTOPENIA [None]
